FAERS Safety Report 15958072 (Version 1)
Quarter: 2019Q1

REPORT INFORMATION
  Report Type: Report from Study
  Country: None (occurrence: CN)
  Receive Date: 20190213
  Receipt Date: 20190213
  Transmission Date: 20190417
  Serious: Yes (Hospitalization)
  Sender: FDA-Public Use
  Company Number: CN-ABBVIE-19P-035-2658537-00

PATIENT
  Age: 72 Year
  Sex: Male
  Weight: 59 kg

DRUGS (14)
  1. VENETOCLAX. [Suspect]
     Active Substance: VENETOCLAX
     Route: 048
     Dates: start: 20181012, end: 20181012
  2. VENETOCLAX. [Suspect]
     Active Substance: VENETOCLAX
     Route: 048
     Dates: start: 20181013, end: 20181013
  3. CYTARABINE. [Suspect]
     Active Substance: CYTARABINE
     Indication: ACUTE MYELOID LEUKAEMIA
     Dosage: DAYS 1  10 OF A 28-DAY CYCLE
     Route: 058
     Dates: start: 20181011
  4. RECOMBINANT HUMAN GRANULOCYTE COLONY-STIMULATING FACTOR INJECTION [Concomitant]
     Route: 058
     Dates: start: 20181108, end: 20181108
  5. VENETOCLAX. [Suspect]
     Active Substance: VENETOCLAX
     Route: 048
     Dates: start: 20181014, end: 20190207
  6. RECOMBINANT HUMAN GRANULOCYTE COLONY-STIMULATING FACTOR INJECTION [Concomitant]
     Indication: BONE MARROW FAILURE
     Route: 058
     Dates: start: 20181103, end: 20181103
  7. RECOMBINANT HUMAN GRANULOCYTE COLONY-STIMULATING FACTOR INJECTION [Concomitant]
     Route: 058
     Dates: start: 20181106, end: 20181106
  8. RECOMBINANT HUMAN GRANULOCYTE COLONY-STIMULATING FACTOR INJECTION [Concomitant]
     Route: 058
     Dates: start: 20181127, end: 20181129
  9. VENETOCLAX. [Suspect]
     Active Substance: VENETOCLAX
     Indication: ACUTE MYELOID LEUKAEMIA
     Route: 048
     Dates: start: 20181011, end: 20181011
  10. RECOMBINANT HUMAN GRANULOCYTE COLONY-STIMULATING FACTOR INJECTION [Concomitant]
     Route: 058
     Dates: start: 20181201, end: 20181208
  11. SODIUM BICARBONATE. [Concomitant]
     Active Substance: SODIUM BICARBONATE
     Indication: PROPHYLAXIS
     Route: 048
     Dates: start: 20181002, end: 20181107
  12. RECOMBINANT HUMAN GRANULOCYTE COLONY-STIMULATING FACTOR INJECTION [Concomitant]
     Route: 058
     Dates: start: 20181229, end: 20181230
  13. RECOMBINANT HUMAN GRANULOCYTE COLONY-STIMULATING FACTOR INJECTION [Concomitant]
     Route: 058
     Dates: start: 20190115, end: 20190115
  14. RECOMBINANT HUMAN GRANULOCYTE COLONY-STIMULATING FACTOR INJECTION [Concomitant]
     Route: 058
     Dates: start: 20190103, end: 20190109

REACTIONS (1)
  - Bone marrow failure [Not Recovered/Not Resolved]

NARRATIVE: CASE EVENT DATE: 20190206
